FAERS Safety Report 8539689-4 (Version None)
Quarter: 2012Q3

REPORT INFORMATION
  Report Type: 
  Country: None (occurrence: None)
  Receive Date: 20120726
  Receipt Date: 20110718
  Transmission Date: 20120928
  Serious: No
  Sender: FDA-Public Use
  Company Number: US-ASTRAZENECA-2009UW00207

PATIENT
  Age: 36 Year
  Sex: Female
  Weight: 128.4 kg

DRUGS (11)
  1. GEODON [Concomitant]
     Dates: start: 20070817
  2. WELLBUTRIN XL [Concomitant]
     Dates: start: 20070817
  3. SEROQUEL [Suspect]
     Route: 048
     Dates: start: 20050103
  4. LITHIUM CARBONATE [Concomitant]
     Dates: start: 20070817
  5. GEODON [Concomitant]
     Dates: start: 20080101
  6. LAMISIL [Concomitant]
     Dates: start: 20050927
  7. SEROQUEL [Suspect]
     Route: 048
     Dates: end: 20070817
  8. VALIUM [Concomitant]
     Dosage: 10 HS
     Dates: start: 20070817
  9. LAMICTAL [Concomitant]
     Dates: start: 20050103
  10. LAMICTAL [Concomitant]
     Dates: start: 20070817
  11. TOPAMAX [Concomitant]
     Dates: start: 20050103

REACTIONS (5)
  - TYPE 2 DIABETES MELLITUS [None]
  - WEIGHT INCREASED [None]
  - HYPERTENSION [None]
  - SLEEP APNOEA SYNDROME [None]
  - BLOOD CHOLESTEROL INCREASED [None]
